FAERS Safety Report 17004612 (Version 3)
Quarter: 2021Q1

REPORT INFORMATION
  Report Type: Spontaneous
  Country: US (occurrence: US)
  Receive Date: 20191107
  Receipt Date: 20210312
  Transmission Date: 20210419
  Serious: Yes (Other)
  Sender: FDA-Public Use
  Company Number: US-PFIZER INC-2019122455

PATIENT
  Age: 58 Year
  Sex: Male
  Weight: 84.4 kg

DRUGS (2)
  1. LYRICA [Suspect]
     Active Substance: PREGABALIN
     Indication: DIABETIC NEUROPATHY
     Dosage: 300 MG, THREE TIMES A DAY
     Route: 048
     Dates: start: 2016
  2. LYRICA [Suspect]
     Active Substance: PREGABALIN
     Dosage: 300 MG, TWICE A DAY

REACTIONS (4)
  - Drug dependence [Unknown]
  - Prescribed overdose [Unknown]
  - Intentional product use issue [Unknown]
  - Illness [Unknown]

NARRATIVE: CASE EVENT DATE: 2016
